FAERS Safety Report 6193288-0 (Version None)
Quarter: 2009Q2

REPORT INFORMATION
  Report Type: 
  Country: None (occurrence: None)
  Receive Date: 20090518
  Receipt Date: 20090515
  Transmission Date: 20091009
  Serious: Yes (Other)
  Sender: FDA-Public Use
  Company Number: DE-B.I. PHARMACEUTICALS,INC./RIDGEFIELD-2009-DE-03626DE

PATIENT
  Sex: Male
  Weight: 68 kg

DRUGS (1)
  1. CATAPRES [Suspect]
     Indication: HYPERTENSION
     Dosage: 450MCG
     Dates: start: 20081201

REACTIONS (4)
  - BLOOD PRESSURE INCREASED [None]
  - CONSTIPATION [None]
  - DYSPHAGIA [None]
  - RESPIRATORY DEPRESSION [None]
